FAERS Safety Report 5586941-0 (Version None)
Quarter: 2007Q4

REPORT INFORMATION
  Report Type: 
  Country: None (occurrence: None)
  Receive Date: 20071205
  Receipt Date: 20070628
  Transmission Date: 20080405
  Serious: Yes (Hospitalization, Other)
  Sender: FDA-Public Use
  Company Number: HQWYE869002JUL07

PATIENT
  Age: 29 Year
  Sex: Male

DRUGS (6)
  1. EFFEXOR XR [Suspect]
     Indication: ANXIETY
     Dosage: 75 MG 1 X PER 1 DAY, ^TITRATING DOWN^
     Dates: start: 20070501, end: 20070601
  2. EFFEXOR XR [Suspect]
     Indication: DEPRESSION
     Dosage: 75 MG 1 X PER 1 DAY, ^TITRATING DOWN^
     Dates: start: 20070501, end: 20070601
  3. EFFEXOR XR [Suspect]
     Indication: ANXIETY
     Dosage: 75 MG 1 X PER 1 DAY, ^TITRATING DOWN^
     Dates: start: 20070601
  4. EFFEXOR XR [Suspect]
     Indication: DEPRESSION
     Dosage: 75 MG 1 X PER 1 DAY, ^TITRATING DOWN^
     Dates: start: 20070601
  5. FENOFIBRATE [Concomitant]
  6. XANAX [Concomitant]

REACTIONS (2)
  - CONVULSION [None]
  - SYNCOPE [None]
